FAERS Safety Report 5483811-3 (Version None)
Quarter: 2007Q4

REPORT INFORMATION
  Report Type: 
  Country: None (occurrence: None)
  Receive Date: 20071012
  Receipt Date: 20071009
  Transmission Date: 20080405
  Serious: Yes (Hospitalization)
  Sender: FDA-Public Use
  Company Number: B0490617A

PATIENT
  Age: 51 Year
  Sex: Male
  Weight: 48.8 kg

DRUGS (3)
  1. CEFAMEZIN [Suspect]
     Indication: SHUNT INFECTION
     Dosage: 1.1G PER DAY
     Route: 042
  2. ASPIRIN [Concomitant]
  3. CALCIUM CARBONATE [Concomitant]

REACTIONS (3)
  - BLOOD PRESSURE INCREASED [None]
  - NAUSEA [None]
  - PRURITUS GENERALISED [None]
